FAERS Safety Report 5070945-0 (Version None)
Quarter: 2006Q3

REPORT INFORMATION
  Report Type: 
  Country: None (occurrence: None)
  Receive Date: 20060714
  Receipt Date: 20060424
  Transmission Date: 20061208
  Serious: No
  Sender: FDA-Public Use
  Company Number: 2006SP001814

PATIENT
  Age: 60 Year
  Sex: Female
  Weight: 70.3075 kg

DRUGS (4)
  1. LUNESTA [Suspect]
     Indication: INSOMNIA
     Dosage: SEE IMAGE
     Route: 048
     Dates: start: 20060421, end: 20060421
  2. LUNESTA [Suspect]
     Indication: INSOMNIA
     Dosage: SEE IMAGE
     Route: 048
     Dates: start: 20060422, end: 20060423
  3. DIPHENHYDRAMINE [Concomitant]
  4. PREDNISONE [Concomitant]

REACTIONS (1)
  - INSOMNIA [None]
